FAERS Safety Report 17794624 (Version 1)
Quarter: 2020Q2

REPORT INFORMATION
  Report Type: Spontaneous
  Country: DE (occurrence: DE)
  Receive Date: 20200516
  Receipt Date: 20200516
  Transmission Date: 20200714
  Serious: Yes (Death, Life-Threatening, Other)
  Sender: FDA-Public Use
  Company Number: DE-AMGEN-DEUSP2020073792

PATIENT

DRUGS (2)
  1. CARFILZOMIB [Suspect]
     Active Substance: CARFILZOMIB
     Indication: PLASMA CELL MYELOMA
     Dosage: UNK
     Route: 065
  2. DEXAMETHASONE. [Concomitant]
     Active Substance: DEXAMETHASONE
     Indication: PLASMA CELL MYELOMA
     Dosage: UNK

REACTIONS (25)
  - Neutrophil count decreased [Unknown]
  - Mouth haemorrhage [Unknown]
  - Anaemia [Unknown]
  - Atrial fibrillation [Unknown]
  - Pneumonia [Fatal]
  - Febrile neutropenia [Unknown]
  - Hepatic enzyme increased [Unknown]
  - Therapy partial responder [Unknown]
  - Cytokine release syndrome [Unknown]
  - Seizure [Unknown]
  - Gastrointestinal infection [Unknown]
  - White blood cell count decreased [Unknown]
  - Polyneuropathy [Unknown]
  - Skin infection [Unknown]
  - Device related infection [Unknown]
  - Plasma cell myeloma [Unknown]
  - Urinary tract infection [Unknown]
  - Renal failure [Unknown]
  - Influenza [Unknown]
  - Cardiac failure [Unknown]
  - Platelet count decreased [Unknown]
  - Embolism [Unknown]
  - Meningitis bacterial [Unknown]
  - Sinusitis [Unknown]
  - Upper respiratory tract infection [Unknown]
